FAERS Safety Report 5049709-X (Version None)
Quarter: 2006Q3

REPORT INFORMATION
  Report Type: 
  Country: None (occurrence: None)
  Receive Date: 20060707
  Receipt Date: 20060615
  Transmission Date: 20061208
  Serious: Yes (Other)
  Sender: FDA-Public Use
  Company Number: 2005US000531

PATIENT
  Age: 48 Year
  Sex: Female
  Weight: 61.2 kg

DRUGS (1)
  1. PROTOPIC [Suspect]
     Indication: DERMATITIS ATOPIC
     Dosage: PRN, TOPICAL
     Route: 061
     Dates: start: 20020101, end: 20050101

REACTIONS (1)
  - CHRONIC LYMPHOCYTIC LEUKAEMIA [None]
